FAERS Safety Report 4748495-8 (Version None)
Quarter: 2005Q3

REPORT INFORMATION
  Report Type: 
  Country: None (occurrence: None)
  Receive Date: 20050811
  Receipt Date: 20050729
  Transmission Date: 20060218
  Serious: Yes (Hospitalization)
  Sender: FDA-Public Use
  Company Number: 2005BH000926

PATIENT
  Age: 73 Year
  Weight: 62.2 kg

DRUGS (15)
  1. EXTRANEAL [Suspect]
     Indication: RENAL FAILURE CHRONIC
     Dosage: 1500 ML; EVERY DAY; IP
     Dates: start: 20040329
  2. DIANEAL PD2 BAG [Concomitant]
  3. GUANABENZ ACETATE [Concomitant]
  4. MICARDIS [Concomitant]
  5. ADALAT [Concomitant]
  6. AMLODIPINE BESILATE [Concomitant]
  7. ATORVASTATIN CALCIUM [Concomitant]
  8. AMARYL [Concomitant]
  9. KINEDAK [Concomitant]
  10. POLARAMINE [Concomitant]
  11. ALESION [Concomitant]
  12. ALFAROL [Concomitant]
  13. EPOETIN BETA [Concomitant]
  14. ATELEC [Concomitant]
  15. ALLOPURINOL [Concomitant]

REACTIONS (1)
  - INGUINAL HERNIA [None]
